FAERS Safety Report 21547672 (Version 1)
Quarter: 2022Q4

REPORT INFORMATION
  Report Type: Spontaneous
  Country: US (occurrence: US)
  Receive Date: 20221103
  Receipt Date: 20221103
  Transmission Date: 20230113
  Serious: No
  Sender: FDA-Public Use
  Company Number: US-ABBVIE-4148540

PATIENT
  Sex: Female

DRUGS (5)
  1. SYNTHROID [Suspect]
     Active Substance: LEVOTHYROXINE SODIUM
     Indication: Hyperthyroidism
     Route: 048
  2. Methomazole [Concomitant]
     Indication: Hyperthyroidism
  3. Covid-19 Vaccine [Concomitant]
     Indication: COVID-19 immunisation
     Dosage: 1ST DOSE
     Route: 030
  4. Covid-19 Vaccine [Concomitant]
     Indication: COVID-19 immunisation
     Dosage: 2ND DOSE
     Route: 030
  5. Covid-19 Vaccine [Concomitant]
     Indication: COVID-19 immunisation
     Dosage: BOOSTER DOSE
     Route: 030

REACTIONS (8)
  - Hyperthyroidism [Unknown]
  - Stress [Unknown]
  - Fatigue [Unknown]
  - Weight decreased [Unknown]
  - Tremor [Unknown]
  - Dyspnoea [Unknown]
  - Blood thyroid stimulating hormone increased [Unknown]
  - Hypothyroidism [Unknown]

NARRATIVE: CASE EVENT DATE: 20220101
